FAERS Safety Report 18745151 (Version 1)
Quarter: 2021Q1

REPORT INFORMATION
  Report Type: Spontaneous
  Country: US (occurrence: US)
  Receive Date: 20210114
  Receipt Date: 20210114
  Transmission Date: 20210419
  Serious: Yes (Other)
  Sender: FDA-Public Use
  Company Number: None

PATIENT
  Age: 28 Year
  Sex: Male
  Weight: 85.7 kg

DRUGS (1)
  1. CHLORHEXIDINE GLUCONATE ORAL RINSE 0.12% [Suspect]
     Active Substance: CHLORHEXIDINE GLUCONATE
     Indication: PRODUCT USED FOR UNKNOWN INDICATION
     Route: 002
     Dates: start: 20200819, end: 20201028

REACTIONS (5)
  - Sputum culture positive [None]
  - Stenotrophomonas infection [None]
  - Product quality issue [None]
  - Burkholderia infection [None]
  - Culture positive [None]
